FAERS Safety Report 8165352-8 (Version None)
Quarter: 2012Q1

REPORT INFORMATION
  Report Type: 
  Country: None (occurrence: None)
  Receive Date: 20120227
  Receipt Date: 20110222
  Transmission Date: 20120608
  Serious: No
  Sender: FDA-Public Use
  Company Number: US-MYLANLABS-2011S1001669

PATIENT
  Age: 50 Year
  Sex: Female

DRUGS (1)
  1. METFORMIN HCL [Suspect]
     Indication: DIABETES MELLITUS
     Dates: start: 20100801

REACTIONS (3)
  - HYPERSENSITIVITY [None]
  - PRURITUS [None]
  - THROAT IRRITATION [None]
